FAERS Safety Report 5150994-4 (Version None)
Quarter: 2006Q4

REPORT INFORMATION
  Report Type: 
  Country: None (occurrence: None)
  Receive Date: 20061108
  Receipt Date: 20061024
  Transmission Date: 20070319
  Serious: Yes (Other)
  Sender: FDA-Public Use
  Company Number: 15037

PATIENT
  Age: 70 Year
  Sex: Male

DRUGS (2)
  1. DOPAMINE HCL IN 5% DEXTROSE [Suspect]
     Indication: SEPTIC SHOCK
  2. NOREPINEPHRINE BITARTRATE [Suspect]
     Indication: SEPTIC SHOCK

REACTIONS (4)
  - CARDIAC HYPERTROPHY [None]
  - LEFT VENTRICLE OUTFLOW TRACT OBSTRUCTION [None]
  - MITRAL VALVE INCOMPETENCE [None]
  - THERAPY NON-RESPONDER [None]
